FAERS Safety Report 7358393-1 (Version None)
Quarter: 2011Q1

REPORT INFORMATION
  Report Type: 
  Country: None (occurrence: None)
  Receive Date: 20110317
  Receipt Date: 20110303
  Transmission Date: 20110831
  Serious: Yes (Hospitalization)
  Sender: FDA-Public Use
  Company Number: PHHY2010US43450

PATIENT
  Sex: Male

DRUGS (2)
  1. WARFARIN [Concomitant]
  2. GLEEVEC [Suspect]
     Indication: CHRONIC MYELOID LEUKAEMIA
     Dosage: 500 MG, QD
     Route: 048
     Dates: start: 20070918

REACTIONS (5)
  - RASH ERYTHEMATOUS [None]
  - TINEA INFECTION [None]
  - PSORIASIS [None]
  - ATRIAL FLUTTER [None]
  - SKIN DISORDER [None]
